FAERS Safety Report 6469695-5 (Version None)
Quarter: 2009Q4

REPORT INFORMATION
  Report Type: 
  Country: None (occurrence: None)
  Receive Date: 20091203
  Receipt Date: 20071024
  Transmission Date: 20100525
  Serious: Yes (Other)
  Sender: FDA-Public Use
  Company Number: US-ELI_LILLY_AND_COMPANY-US200710006297

PATIENT
  Sex: Female
  Weight: 84.354 kg

DRUGS (5)
  1. BYETTA [Suspect]
     Indication: TYPE 2 DIABETES MELLITUS
     Dosage: 5 UG, 2/D
     Route: 058
     Dates: start: 20060101, end: 20070501
  2. BYETTA [Suspect]
     Dosage: 10 UG, 2/D
     Route: 058
     Dates: start: 20070501, end: 20071001
  3. BYETTA [Suspect]
     Dosage: 10 MG, 2/D
     Route: 058
     Dates: start: 20071024
  4. GLUCOPHAGE XR [Concomitant]
     Indication: DIABETES MELLITUS
     Dosage: 1500 MG, EACH MORNING
     Route: 048
     Dates: start: 20030101
  5. GLUCOPHAGE XR [Concomitant]
     Dosage: 1000 MG, EACH EVENING
     Route: 048
     Dates: start: 20030101

REACTIONS (7)
  - CONVULSION [None]
  - CSF SHUNT OPERATION [None]
  - DECREASED APPETITE [None]
  - HYPOPHAGIA [None]
  - NAUSEA [None]
  - VOMITING [None]
  - WEIGHT DECREASED [None]
